FAERS Safety Report 7087644-6 (Version None)
Quarter: 2010Q4

REPORT INFORMATION
  Report Type: 
  Country: None (occurrence: None)
  Receive Date: 20101108
  Receipt Date: 20101029
  Transmission Date: 20110411
  Serious: No
  Sender: FDA-Public Use
  Company Number: US-BIOGENIDEC-2010BI038398

PATIENT
  Age: 50 Year
  Sex: Female

DRUGS (1)
  1. TYSABRI [Suspect]
     Indication: MULTIPLE SCLEROSIS
     Route: 042
     Dates: start: 20100723

REACTIONS (5)
  - ANXIETY [None]
  - DRUG INEFFECTIVE [None]
  - GASTROENTERITIS VIRAL [None]
  - IMMUNE SYSTEM DISORDER [None]
  - URINARY TRACT INFECTION [None]
